FAERS Safety Report 8507837-8 (Version None)
Quarter: 2012Q3

REPORT INFORMATION
  Report Type: 
  Country: None (occurrence: None)
  Receive Date: 20120713
  Receipt Date: 20120709
  Transmission Date: 20120928
  Serious: Yes (Hospitalization, Other)
  Sender: FDA-Public Use
  Company Number: PHHY2011IT46201

PATIENT
  Sex: Female

DRUGS (3)
  1. KEPPRA [Suspect]
     Indication: EPILEPSY
     Dosage: 1.2 MG, DAILY
     Route: 048
     Dates: start: 20110401, end: 20110501
  2. TEGRETOL [Suspect]
     Indication: EPILEPSY
     Dosage: 100 MG, DAILY
     Route: 048
     Dates: start: 20110401, end: 20110501
  3. VALPROATE SODIUM [Suspect]
     Indication: ENCEPHALOPATHY
     Dosage: 1 G, DAILY
     Route: 048
     Dates: start: 20110401, end: 20110501

REACTIONS (1)
  - DYSTONIA [None]
